FAERS Safety Report 6251691-4 (Version None)
Quarter: 2009Q2

REPORT INFORMATION
  Report Type: 
  Country: None (occurrence: None)
  Receive Date: 20090625
  Receipt Date: 20090625
  Transmission Date: 20091009
  Serious: Yes (Other)
  Sender: FDA-Public Use
  Company Number: None

PATIENT
  Sex: Female
  Weight: 70.3075 kg

DRUGS (1)
  1. ASACOL [Suspect]
     Dates: start: 20081212, end: 20090624

REACTIONS (10)
  - ABDOMINAL PAIN UPPER [None]
  - ALOPECIA [None]
  - DIARRHOEA [None]
  - FATIGUE [None]
  - FLATULENCE [None]
  - HAEMORRHAGE [None]
  - JOINT SPRAIN [None]
  - MUSCLE INJURY [None]
  - SOFT TISSUE DISORDER [None]
  - TENDON INJURY [None]
